FAERS Safety Report 5800488-5 (Version None)
Quarter: 2008Q3

REPORT INFORMATION
  Report Type: 
  Country: None (occurrence: None)
  Receive Date: 20080703
  Receipt Date: 20080627
  Transmission Date: 20090109
  Serious: Yes (Death)
  Sender: FDA-Public Use
  Company Number: A0735908A

PATIENT
  Age: 74 Year
  Sex: Male

DRUGS (1)
  1. SERETIDE [Suspect]

REACTIONS (1)
  - DEATH [None]
